FAERS Safety Report 9227035 (Version 1)
Quarter: 2013Q2

REPORT INFORMATION
  Report Type: Spontaneous
  Country: US (occurrence: None)
  Receive Date: 20130410
  Receipt Date: 20130410
  Transmission Date: 20140414
  Serious: Yes (Other)
  Sender: FDA-Public Use
  Company Number: ADR-2013-00607

PATIENT
  Age: 1 Day
  Sex: Male

DRUGS (2)
  1. BACLOFEN [Suspect]
  2. LYRICA (PREGABALIN) [Suspect]

REACTIONS (6)
  - Drug withdrawal syndrome [None]
  - Tremor [None]
  - Restlessness [None]
  - Irritability [None]
  - Agitation [None]
  - Maternal drugs affecting foetus [None]
